FAERS Safety Report 12637852 (Version 3)
Quarter: 2018Q3

REPORT INFORMATION
  Report Type: Spontaneous
  Country: JP (occurrence: JP)
  Receive Date: 20160809
  Receipt Date: 20180925
  Transmission Date: 20181010
  Serious: Yes (Other)
  Sender: FDA-Public Use
  Company Number: JP-BAUSCH-BL-2016-018864

PATIENT
  Age: 60 Year
  Sex: Male

DRUGS (3)
  1. VISUDYNE [Suspect]
     Active Substance: VERTEPORFIN
     Indication: AGE-RELATED MACULAR DEGENERATION
     Route: 042
  2. LUCENTIS [Suspect]
     Active Substance: RANIBIZUMAB
     Indication: AGE-RELATED MACULAR DEGENERATION
     Dosage: THREE CONSECUTIVE INJECTION
     Route: 031
  3. AFLIBERCEPT [Concomitant]
     Active Substance: AFLIBERCEPT
     Indication: PRODUCT USED FOR UNKNOWN INDICATION
     Dosage: INTO RIGHT EYE
     Route: 031

REACTIONS (4)
  - Subretinal fluid [Unknown]
  - Visual acuity reduced [Unknown]
  - Detachment of retinal pigment epithelium [Recovered/Resolved]
  - Vasodilatation [Unknown]
